FAERS Safety Report 9671700 (Version 1)
Quarter: 2013Q4

REPORT INFORMATION
  Report Type: Spontaneous
  Country: DE (occurrence: DE)
  Receive Date: 20131106
  Receipt Date: 20131106
  Transmission Date: 20140711
  Serious: Yes (Life-Threatening)
  Sender: FDA-Public Use
  Company Number: GXKR2013DE003470

PATIENT
  Sex: 0

DRUGS (10)
  1. CLOPIDOGREL [Suspect]
     Indication: CORONARY ARTERIAL STENT INSERTION
     Route: 048
  2. SIMVASTATIN [Suspect]
     Indication: CORONARY ARTERY DISEASE
     Route: 048
  3. MINERALS NOS [Suspect]
     Dates: start: 20130901
  4. ALLOPURINOL [Concomitant]
  5. ASS [Concomitant]
  6. AMLODIPINE [Concomitant]
  7. VALSARTAN [Concomitant]
  8. TORASEMID [Concomitant]
  9. BELOZOK [Concomitant]
  10. DOXAZOSIN [Concomitant]

REACTIONS (2)
  - Renal failure acute [Not Recovered/Not Resolved]
  - Subacute hepatic failure [Not Recovered/Not Resolved]
